FAERS Safety Report 17137587 (Version 1)
Quarter: 2019Q4

REPORT INFORMATION
  Report Type: Spontaneous
  Country: CO (occurrence: CO)
  Receive Date: 20191210
  Receipt Date: 20191210
  Transmission Date: 20200122
  Serious: Yes (Other)
  Sender: FDA-Public Use
  Company Number: CO-AMGEN-COLSP2016129695

PATIENT
  Age: 55 Year
  Sex: Female

DRUGS (3)
  1. ENBREL [Suspect]
     Active Substance: ETANERCEPT
     Indication: POLYARTHRITIS
     Dosage: 50 MILLIGRAM, QWK
     Route: 058
  2. ENBREL [Suspect]
     Active Substance: ETANERCEPT
     Indication: RHEUMATOID ARTHRITIS
     Dosage: 50 MILLIGRAM, QMO
     Route: 058
  3. ENBREL [Suspect]
     Active Substance: ETANERCEPT
     Indication: OSTEOARTHRITIS
     Dosage: UNK
     Route: 065

REACTIONS (20)
  - General physical health deterioration [Unknown]
  - Epistaxis [Unknown]
  - Nasal cyst [Unknown]
  - Depression [Unknown]
  - Headache [Unknown]
  - Nasal obstruction [Unknown]
  - Off label use [Unknown]
  - Joint swelling [Not Recovered/Not Resolved]
  - Pyrexia [Unknown]
  - Mass [Not Recovered/Not Resolved]
  - Pain [Not Recovered/Not Resolved]
  - Gait disturbance [Not Recovered/Not Resolved]
  - Chronic sinusitis [Unknown]
  - Gastritis [Unknown]
  - Malaise [Unknown]
  - Weight decreased [Unknown]
  - Inflammation [Unknown]
  - Dermal cyst [Not Recovered/Not Resolved]
  - Rheumatoid arthritis [Unknown]
  - Aphonia [Not Recovered/Not Resolved]

NARRATIVE: CASE EVENT DATE: 201603
